FAERS Safety Report 25101301 (Version 1)
Quarter: 2025Q1

REPORT INFORMATION
  Report Type: Spontaneous
  Country: US (occurrence: None)
  Receive Date: 20250320
  Receipt Date: 20250320
  Transmission Date: 20250409
  Serious: Yes (Life-Threatening)
  Sender: FDA-CTU
  Company Number: None

PATIENT

DRUGS (1)
  1. CEFTRIAXONE [Suspect]
     Active Substance: CEFTRIAXONE
     Dosage: FREQUENCY : DAILY;?
     Route: 041
     Dates: start: 20250315, end: 20250316

REACTIONS (7)
  - Dyspnoea [None]
  - Pruritus [None]
  - Swollen tongue [None]
  - Lip swelling [None]
  - Respiratory distress [None]
  - Drug hypersensitivity [None]
  - Anaphylactic reaction [None]

NARRATIVE: CASE EVENT DATE: 20250316
